FAERS Safety Report 13710854 (Version 1)
Quarter: 2017Q3

REPORT INFORMATION
  Report Type: Spontaneous
  Country: US (occurrence: US)
  Receive Date: 20170701
  Receipt Date: 20170701
  Transmission Date: 20171127
  Serious: Yes (Hospitalization)
  Sender: FDA-Public Use
  Company Number: None

PATIENT
  Age: 62 Year
  Sex: Male
  Weight: 101 kg

DRUGS (3)
  1. DEXAMETHASONE. [Suspect]
     Active Substance: DEXAMETHASONE
     Dates: end: 20170623
  2. LENALIDOMIDE (CC-5013) [Suspect]
     Active Substance: LENALIDOMIDE
     Dates: end: 20170626
  3. VELCADE [Suspect]
     Active Substance: BORTEZOMIB
     Dates: end: 20170623

REACTIONS (6)
  - Diarrhoea [None]
  - Nausea [None]
  - Asthenia [None]
  - Abdominal pain [None]
  - Decreased appetite [None]
  - Acute kidney injury [None]

NARRATIVE: CASE EVENT DATE: 20170628
